FAERS Safety Report 12494593 (Version 2)
Quarter: 2016Q3

REPORT INFORMATION
  Report Type: Report from Study
  Country: CA (occurrence: CA)
  Receive Date: 20160624
  Receipt Date: 20160718
  Transmission Date: 20161109
  Serious: Yes (Other)
  Sender: FDA-Public Use
  Company Number: CA-ROCHE-1782276

PATIENT
  Age: 76 Year
  Sex: Female

DRUGS (9)
  1. ESBRIET [Suspect]
     Active Substance: PIRFENIDONE
     Indication: IDIOPATHIC PULMONARY FIBROSIS
     Route: 048
     Dates: start: 20160609
  2. SALBUTAMOL [Concomitant]
     Active Substance: ALBUTEROL
  3. LANSOPRAZOLE. [Concomitant]
     Active Substance: LANSOPRAZOLE
  4. ESBRIET [Suspect]
     Active Substance: PIRFENIDONE
     Route: 048
     Dates: start: 20160704, end: 20160711
  5. ATORVASTATIN [Concomitant]
     Active Substance: ATORVASTATIN
  6. ELTROXIN [Concomitant]
     Active Substance: LEVOTHYROXINE
  7. ESBRIET [Suspect]
     Active Substance: PIRFENIDONE
     Route: 048
     Dates: start: 201606, end: 20160623
  8. DILTIAZEM. [Concomitant]
     Active Substance: DILTIAZEM
  9. LASIX [Concomitant]
     Active Substance: FUROSEMIDE

REACTIONS (4)
  - Abdominal discomfort [Not Recovered/Not Resolved]
  - Dyspnoea [Not Recovered/Not Resolved]
  - Fatigue [Unknown]
  - Dyspepsia [Unknown]

NARRATIVE: CASE EVENT DATE: 201606
